FAERS Safety Report 18056768 (Version 2)
Quarter: 2021Q3

REPORT INFORMATION
  Report Type: Spontaneous
  Country: CA (occurrence: CA)
  Receive Date: 20200722
  Receipt Date: 20210823
  Transmission Date: 20211014
  Serious: Yes (Other)
  Sender: FDA-Public Use
  Company Number: CA-TEVA-2020-CA-1802334

PATIENT
  Age: 6 Year
  Sex: Male
  Weight: 25 kg

DRUGS (34)
  1. L?CARNITINE [Concomitant]
     Active Substance: LEVOCARNITINE
     Route: 065
  2. VANCOMYCIN [Concomitant]
     Active Substance: VANCOMYCIN
     Route: 065
  3. BIOTIN [Concomitant]
     Active Substance: BIOTIN
     Route: 065
  4. THIAMINE. [Concomitant]
     Active Substance: THIAMINE
  5. UBIQUINOL [Concomitant]
     Active Substance: UBIQUINOL
     Route: 065
  6. METHYLPREDNISOLONE NOS [Suspect]
     Active Substance: METHYLPREDNISOLONE
     Dosage: 750 MILLIGRAM DAILY;
     Route: 042
  7. METHYLPREDNISOLONE NOS [Suspect]
     Active Substance: METHYLPREDNISOLONE
     Dosage: 50 MILLIGRAM DAILY;
     Route: 042
  8. ACYCLOVIR. [Concomitant]
     Active Substance: ACYCLOVIR
     Route: 065
  9. FAMOTIDINE. [Concomitant]
     Active Substance: FAMOTIDINE
     Route: 065
  10. IBUPROFEN. [Concomitant]
     Active Substance: IBUPROFEN
     Route: 065
  11. CEFUROXIME. [Concomitant]
     Active Substance: CEFUROXIME
     Route: 065
  12. LORAZEPAM. [Concomitant]
     Active Substance: LORAZEPAM
  13. UBIQUINOL [Concomitant]
     Active Substance: UBIQUINOL
  14. VITAMIN B1 [Concomitant]
     Active Substance: THIAMINE HYDROCHLORIDE
     Route: 065
  15. ACETAMINOPHEN. [Concomitant]
     Active Substance: ACETAMINOPHEN
     Route: 065
  16. RIBOFLAVINE TAB 100MG [Concomitant]
     Route: 065
  17. ANAKINRA [Concomitant]
     Active Substance: ANAKINRA
     Route: 065
  18. CLEARLAX [Concomitant]
     Active Substance: POLYETHYLENE GLYCOL 3350
     Route: 065
  19. BACLOFEN. [Concomitant]
     Active Substance: BACLOFEN
  20. CEFOTAXIME [Concomitant]
     Active Substance: CEFOTAXIME SODIUM
     Route: 065
  21. FENTANYL. [Concomitant]
     Active Substance: FENTANYL
     Route: 065
  22. KINERET [Concomitant]
     Active Substance: ANAKINRA
  23. MIDAZOLAM (UNKNOWN) [Concomitant]
     Active Substance: MIDAZOLAM HYDROCHLORIDE
     Route: 065
  24. PIPERACILLIN AND TAZOBACTAM [Concomitant]
     Active Substance: PIPERACILLIN SODIUM\TAZOBACTAM SODIUM
  25. MORPHINE [Concomitant]
     Active Substance: MORPHINE
     Route: 065
  26. OSELTAMIVIR [Concomitant]
     Active Substance: OSELTAMIVIR
     Route: 065
  27. METHYLPREDNISOLONE NOS [Suspect]
     Active Substance: METHYLPREDNISOLONE
     Indication: ADRENOCORTICAL STEROID THERAPY
     Dosage: 36 MILLIGRAM DAILY;
     Route: 042
  28. DIAZEPAM. [Concomitant]
     Active Substance: DIAZEPAM
  29. FUROSEMIDE. [Concomitant]
     Active Substance: FUROSEMIDE
  30. INFLIXIMAB [Concomitant]
     Active Substance: INFLIXIMAB
     Route: 065
  31. ISOPROTERENOL HCL [Concomitant]
     Active Substance: ISOPROTERENOL HYDROCHLORIDE
     Route: 065
  32. PIPERACILLIN AND TAZOBACTAM [Concomitant]
     Active Substance: PIPERACILLIN SODIUM\TAZOBACTAM SODIUM
     Route: 065
  33. POLYETHYLENE GLYCOL [Concomitant]
     Active Substance: POLYETHYLENE GLYCOLS
  34. PROPOFOL. [Concomitant]
     Active Substance: PROPOFOL
     Route: 065

REACTIONS (2)
  - Left ventricular hypertrophy [Unknown]
  - Electrocardiogram abnormal [Unknown]
